FAERS Safety Report 21533629 (Version 1)
Quarter: 2022Q4

REPORT INFORMATION
  Report Type: Spontaneous
  Country: JP (occurrence: JP)
  Receive Date: 20221101
  Receipt Date: 20221101
  Transmission Date: 20230113
  Serious: Yes (Other)
  Sender: FDA-Public Use
  Company Number: JP-AUROBINDO-AUR-APL-2022-045921

PATIENT
  Age: 46 Year
  Sex: Male

DRUGS (7)
  1. MELPHALAN [Suspect]
     Active Substance: MELPHALAN
     Indication: Autologous haematopoietic stem cell transplant
     Dosage: UNK
     Route: 065
     Dates: start: 201812
  2. BUSULFAN [Suspect]
     Active Substance: BUSULFAN
     Indication: Autologous haematopoietic stem cell transplant
     Dosage: UNK
     Route: 065
     Dates: start: 201812
  3. CLOFARABINE [Suspect]
     Active Substance: CLOFARABINE
     Indication: Autologous haematopoietic stem cell transplant
     Dosage: UNK
     Route: 065
  4. CYCLOPHOSPHAMIDE [Suspect]
     Active Substance: CYCLOPHOSPHAMIDE
     Indication: Autologous haematopoietic stem cell transplant
     Dosage: UNK
     Route: 065
  5. ETOPOSIDE [Suspect]
     Active Substance: ETOPOSIDE
     Indication: Autologous haematopoietic stem cell transplant
     Dosage: UNK
     Route: 065
  6. FLUDARABINE [Suspect]
     Active Substance: FLUDARABINE PHOSPHATE
     Indication: Autologous haematopoietic stem cell transplant
     Dosage: UNK
     Route: 065
     Dates: start: 201812
  7. TACROLIMUS [Suspect]
     Active Substance: TACROLIMUS
     Indication: Autologous haematopoietic stem cell transplant
     Dosage: UNK
     Route: 065

REACTIONS (1)
  - Pulmonary arterial hypertension [Unknown]
